FAERS Safety Report 5742132-1 (Version None)
Quarter: 2008Q2

REPORT INFORMATION
  Report Type: 
  Country: None (occurrence: None)
  Receive Date: 20080519
  Receipt Date: 20080507
  Transmission Date: 20081010
  Serious: Yes (Other)
  Sender: FDA-Public Use
  Company Number: US-MERCK-0705USA04136

PATIENT
  Age: 67 Year
  Sex: Female

DRUGS (1)
  1. FOSAMAX [Suspect]
     Indication: OSTEITIS DEFORMANS
     Route: 048
     Dates: start: 19970101, end: 20060601

REACTIONS (12)
  - ARTHROPATHY [None]
  - BACK DISORDER [None]
  - EXOSTOSIS [None]
  - FALL [None]
  - FATIGUE [None]
  - HEAD INJURY [None]
  - HYPERLIPIDAEMIA [None]
  - LETHARGY [None]
  - LUMBAR SPINAL STENOSIS [None]
  - OSTEONECROSIS [None]
  - PAIN [None]
  - SOMNOLENCE [None]
